FAERS Safety Report 24566404 (Version 2)
Quarter: 2025Q3

REPORT INFORMATION
  Report Type: Spontaneous
  Country: RU (occurrence: RU)
  Receive Date: 20241030
  Receipt Date: 20250809
  Transmission Date: 20251021
  Serious: Yes (Hospitalization, Other)
  Sender: ALEXION PHARMACEUTICALS
  Company Number: RU-ASTRAZENECA-202410RUS019468RU

PATIENT
  Sex: Female

DRUGS (7)
  1. FASENRA [Suspect]
     Active Substance: BENRALIZUMAB
  2. Dezrinit [Concomitant]
  3. Seretide multidisk [Concomitant]
  4. MONTELUKAST [Concomitant]
     Active Substance: MONTELUKAST
  5. ALBUTEROL [Concomitant]
     Active Substance: ALBUTEROL
  6. DEXAMETHASONE [Concomitant]
     Active Substance: DEXAMETHASONE
  7. PREDNISOLONE [Concomitant]
     Active Substance: PREDNISOLONE

REACTIONS (5)
  - Pancreatitis [Unknown]
  - Drug ineffective [Unknown]
  - Abdominal pain [Unknown]
  - Abdominal pain upper [Unknown]
  - Bile output [Unknown]
